FAERS Safety Report 4428371-0 (Version None)
Quarter: 2004Q3

REPORT INFORMATION
  Report Type: 
  Country: None (occurrence: None)
  Receive Date: 20040813
  Receipt Date: 20040811
  Transmission Date: 20050211
  Serious: Yes (Hospitalization)
  Sender: FDA-Public Use
  Company Number: E044-318-3487

PATIENT
  Age: 64 Year
  Sex: Female
  Weight: 62 kg

DRUGS (4)
  1. E2020 (DONEPEZIL HYDROCHLORIDE) [Suspect]
     Indication: DEMENTIA
     Dosage: 5 MG, 1 IN 1 D, ORAL
     Route: 048
     Dates: start: 20040524, end: 20040616
  2. E2020 (DONEPEZIL HYDROCHLORIDE) [Suspect]
     Indication: PARKINSON'S DISEASE
     Dosage: 5 MG, 1 IN 1 D, ORAL
     Route: 048
     Dates: start: 20040524, end: 20040616
  3. DONEPEZIL/PLACEBO (DONEPEZIL HYDROCHLORIDE) [Suspect]
     Indication: DEMENTIA
     Dosage: DOUBLEBLIND, 1 IN 1 D, ORAL
     Route: 048
     Dates: start: 20031208, end: 20040523
  4. ATENOLOL CHLORTALIDONE (TENORETIC) [Concomitant]

REACTIONS (1)
  - PARKINSON'S DISEASE [None]
